FAERS Safety Report 19104836 (Version 1)
Quarter: 2021Q2

REPORT INFORMATION
  Report Type: Spontaneous
  Country: CA (occurrence: CA)
  Receive Date: 20210407
  Receipt Date: 20210407
  Transmission Date: 20210717
  Serious: Yes (Hospitalization, Disabling, Other)
  Sender: FDA-Public Use
  Company Number: NVSC2021CA075501

PATIENT
  Age: 78 Year
  Sex: Male
  Weight: 63 kg

DRUGS (1)
  1. SANDOZ METFORMIN FC [Suspect]
     Active Substance: METFORMIN HYDROCHLORIDE
     Indication: TYPE 2 DIABETES MELLITUS
     Dosage: 1 DF, QD (1 EVERY 1 DAYS)
     Route: 048

REACTIONS (10)
  - Gait inability [Unknown]
  - Pain in extremity [Unknown]
  - Paraesthesia [Unknown]
  - Abnormal loss of weight [Unknown]
  - Balance disorder [Unknown]
  - Fall [Unknown]
  - Hypoaesthesia [Unknown]
  - Impaired driving ability [Unknown]
  - Loss of personal independence in daily activities [Unknown]
  - Paralysis [Unknown]
